FAERS Safety Report 6519887-1 (Version None)
Quarter: 2009Q4

REPORT INFORMATION
  Report Type: 
  Country: None (occurrence: None)
  Receive Date: 20091229
  Receipt Date: 20091216
  Transmission Date: 20100525
  Serious: Yes (Other)
  Sender: FDA-Public Use
  Company Number: US-JNJCH-2009032845

PATIENT
  Age: 3 Year

DRUGS (1)
  1. DEXTROMETHORPHAN [Suspect]
     Indication: DRUG USE FOR UNKNOWN INDICATION
     Dosage: TEXT:270MG (12 MG/KG)
     Route: 048

REACTIONS (3)
  - ATAXIA [None]
  - LETHARGY [None]
  - NYSTAGMUS [None]
